FAERS Safety Report 24856572 (Version 1)
Quarter: 2025Q1

REPORT INFORMATION
  Report Type: Spontaneous
  Country: KR (occurrence: KR)
  Receive Date: 20250117
  Receipt Date: 20250117
  Transmission Date: 20250408
  Serious: Yes (Death, Life-Threatening, Other)
  Sender: BRACCO
  Company Number: KR-BRACCO-2025KR00090

PATIENT
  Age: 80 Year
  Sex: Male

DRUGS (1)
  1. IOMERON [Suspect]
     Active Substance: IOMEPROL
     Indication: Computerised tomogram
     Route: 042
     Dates: start: 20250103, end: 20250103

REACTIONS (2)
  - Cardiac arrest [Fatal]
  - Shock [Fatal]

NARRATIVE: CASE EVENT DATE: 20250103
